FAERS Safety Report 17550578 (Version 3)
Quarter: 2020Q2

REPORT INFORMATION
  Report Type: Spontaneous
  Country: US (occurrence: US)
  Receive Date: 20200317
  Receipt Date: 20200427
  Transmission Date: 20200713
  Serious: No
  Sender: FDA-Public Use
  Company Number: US-PFIZER INC-2020113176

PATIENT
  Age: 59 Year
  Sex: Female
  Weight: 131.5 kg

DRUGS (2)
  1. XELJANZ [Suspect]
     Active Substance: TOFACITINIB CITRATE
     Dosage: 10 MG, DAILY [2 TABLETS A DAY ]
  2. XELJANZ [Suspect]
     Active Substance: TOFACITINIB CITRATE
     Indication: ARTHRITIS
     Dosage: 5 MG, 2X/DAY
     Dates: start: 2020

REACTIONS (1)
  - Thinking abnormal [Unknown]

NARRATIVE: CASE EVENT DATE: 2020
